FAERS Safety Report 6815337-6 (Version None)
Quarter: 2010Q3

REPORT INFORMATION
  Report Type: 
  Country: None (occurrence: None)
  Receive Date: 20100701
  Receipt Date: 20100701
  Transmission Date: 20110219
  Serious: Yes (Other)
  Sender: FDA-Public Use
  Company Number: None

PATIENT
  Sex: Male
  Weight: 79.3795 kg

DRUGS (5)
  1. SOLU-MEDROL [Suspect]
     Indication: URTICARIA
     Dosage: 125MG ONCE IM
     Route: 030
     Dates: start: 20100628
  2. WELLBUTRIN [Concomitant]
  3. REMERON [Concomitant]
  4. TYLENOL [Concomitant]
  5. BENADRYL [Concomitant]

REACTIONS (4)
  - ADVERSE REACTION [None]
  - INJECTION SITE PAIN [None]
  - TREMOR [None]
  - URTICARIA [None]
